FAERS Safety Report 12276630 (Version 1)
Quarter: 2016Q2

REPORT INFORMATION
  Report Type: Spontaneous
  Country: CN (occurrence: CN)
  Receive Date: 20160418
  Receipt Date: 20160418
  Transmission Date: 20160815
  Serious: Yes (Disabling, Other)
  Sender: FDA-Public Use
  Company Number: CN-GLAXOSMITHKLINE-CN2016GSK049813

PATIENT
  Age: 5 Month
  Sex: Male
  Weight: 7 kg

DRUGS (2)
  1. FORTUM [Suspect]
     Active Substance: CEFTAZIDIME
     Indication: INFECTION
     Dosage: 0.35 G, BID
     Route: 041
     Dates: start: 20151029, end: 20151030
  2. ACICLOVIR [Suspect]
     Active Substance: ACYCLOVIR
     Dosage: 0.035 G, BID
     Route: 041
     Dates: start: 20151030, end: 20151102

REACTIONS (1)
  - Hepatic function abnormal [Recovering/Resolving]

NARRATIVE: CASE EVENT DATE: 20151102
